FAERS Safety Report 8152054-7 (Version None)
Quarter: 2012Q1

REPORT INFORMATION
  Report Type: 
  Country: None (occurrence: None)
  Receive Date: 20120214
  Receipt Date: 20120207
  Transmission Date: 20120608
  Serious: Yes (Hospitalization, Other)
  Sender: FDA-Public Use
  Company Number: AUR-APL-2009-01112

PATIENT
  Age: 50 Year
  Sex: Female

DRUGS (7)
  1. ATENOLOL [Suspect]
     Indication: PRODUCT USED FOR UNKNOWN INDICATION
     Dosage: ORAL
     Route: 048
  2. SIMVASTATIN [Suspect]
     Indication: PRODUCT USED FOR UNKNOWN INDICATION
     Dosage: ORAL
     Route: 048
  3. PREDNISOLONE [Concomitant]
  4. RAMIPRIL [Suspect]
     Indication: PRODUCT USED FOR UNKNOWN INDICATION
     Dosage: ORAL
     Route: 048
  5. MYOCRISIN (SODIUM AUROTHIOMALATE) [Suspect]
     Indication: PRODUCT USED FOR UNKNOWN INDICATION
     Dosage: (10 MG, 1 D), INTRAMUSCULAR
     Route: 030
     Dates: start: 20080924, end: 20080924
  6. CODEINE PHOSPHATE (CODEINE PHOSPHATE) [Concomitant]
  7. LANSOPRAZOLE [Concomitant]

REACTIONS (16)
  - NAUSEA [None]
  - FALL [None]
  - BURNING SENSATION [None]
  - RENAL FAILURE [None]
  - VOMITING [None]
  - SYNCOPE [None]
  - MUSCULOSKELETAL STIFFNESS [None]
  - HEADACHE [None]
  - BLOOD PRESSURE SYSTOLIC DECREASED [None]
  - GLOMERULAR FILTRATION RATE DECREASED [None]
  - RASH [None]
  - ALANINE AMINOTRANSFERASE INCREASED [None]
  - ASTHENIA [None]
  - DIARRHOEA [None]
  - SHOCK [None]
  - PLATELET COUNT DECREASED [None]
